FAERS Safety Report 8464262-6 (Version None)
Quarter: 2012Q2

REPORT INFORMATION
  Report Type: 
  Country: None (occurrence: None)
  Receive Date: 20120625
  Receipt Date: 20120619
  Transmission Date: 20120825
  Serious: Yes (Other)
  Sender: FDA-Public Use
  Company Number: US-PFIZER INC-2012114834

PATIENT
  Sex: Female
  Weight: 71 kg

DRUGS (2)
  1. XALATAN [Suspect]
     Indication: GLAUCOMA
     Dosage: 1 GTTS, 1 QHS
     Dates: start: 20050412, end: 20120320
  2. XALATAN [Suspect]

REACTIONS (4)
  - INTRAOCULAR PRESSURE INCREASED [None]
  - EYE INFLAMMATION [None]
  - CATARACT [None]
  - DRUG INEFFECTIVE [None]
